FAERS Safety Report 11792789 (Version 1)
Quarter: 2015Q4

REPORT INFORMATION
  Report Type: Spontaneous
  Country: TR (occurrence: None)
  Receive Date: 20151130
  Receipt Date: 20151130
  Transmission Date: 20160305
  Serious: Yes (Other)
  Sender: FDA-Public Use
  Company Number: 2015RR-105852

PATIENT
  Age: 126 Month
  Sex: Male

DRUGS (5)
  1. DESLORATADINE (DESLORATADINE) [Concomitant]
     Active Substance: DESLORATADINE
  2. TRIMETHOPRIM/SULFAMETHOXAZOLE (TRIMETHOPRIM/SULFAMETHOXAZOLE) [Concomitant]
  3. TEMOZOLOMIDE (TEMOZOLOMIDE) [Suspect]
     Active Substance: TEMOZOLOMIDE
     Indication: PRODUCT USED FOR UNKNOWN INDICATION
     Dosage: FOR 5 DAYS, EVERY 28 DAYS
     Route: 048
  4. METHYLPREDNISOLONE (METHYLPREDNISOLONE) [Concomitant]
     Active Substance: METHYLPREDNISOLONE
  5. TEMOZOLOMIDE (TEMOZOLOMIDE) [Concomitant]
     Active Substance: TEMOZOLOMIDE

REACTIONS (2)
  - Rash maculo-papular [None]
  - Type IV hypersensitivity reaction [None]
